FAERS Safety Report 22254219 (Version 1)
Quarter: 2023Q2

REPORT INFORMATION
  Report Type: Spontaneous
  Country: US (occurrence: US)
  Receive Date: 20230426
  Receipt Date: 20230426
  Transmission Date: 20230722
  Serious: No
  Sender: FDA-Public Use
  Company Number: US-009507513-2304USA009155

PATIENT
  Age: 18 Year
  Sex: Male

DRUGS (1)
  1. KEYTRUDA [Suspect]
     Active Substance: PEMBROLIZUMAB
     Indication: Precursor B-lymphoblastic lymphoma recurrent
     Dosage: 200 MG EVERY 3 WEEKS, 2 DOSES

REACTIONS (1)
  - Product use in unapproved indication [Unknown]
